FAERS Safety Report 8277688 (Version 4)
Quarter: 2015Q4

REPORT INFORMATION
  Report Type: Spontaneous
  Country: US (occurrence: US)
  Receive Date: 20111207
  Receipt Date: 20151130
  Transmission Date: 20160305
  Serious: Yes (Hospitalization, Congenital Anomaly, Other)
  Sender: FDA-Public Use
  Company Number: US-ASTELLAS-2011US008003

PATIENT
  Age: 41 Year
  Sex: Male

DRUGS (12)
  1. NOVOLOG [Concomitant]
     Active Substance: INSULIN ASPART
     Indication: DIABETES MELLITUS
     Route: 065
     Dates: start: 1996
  2. LANTUS [Concomitant]
     Active Substance: INSULIN GLARGINE
     Indication: DIABETES MELLITUS
     Route: 065
  3. MORPHINE [Concomitant]
     Active Substance: MORPHINE
     Indication: PRODUCT USED FOR UNKNOWN INDICATION
     Dosage: UNK UNK, UNKNOWN FREQ.
     Route: 065
  4. BYETTA [Concomitant]
     Active Substance: EXENATIDE
     Indication: DIABETES MELLITUS
     Route: 048
  5. PLAVIX [Concomitant]
     Active Substance: CLOPIDOGREL BISULFATE
     Indication: THROMBOSIS
     Route: 048
     Dates: start: 201003
  6. PREDNISONE. [Concomitant]
     Active Substance: PREDNISONE
     Indication: LIVER TRANSPLANT
     Route: 048
     Dates: start: 19941210
  7. ATENOLOL. [Concomitant]
     Active Substance: ATENOLOL
     Indication: BLOOD PRESSURE MEASUREMENT
     Route: 048
  8. OMEPRAZOLE. [Concomitant]
     Active Substance: OMEPRAZOLE
     Indication: GASTROOESOPHAGEAL REFLUX PROPHYLAXIS
     Dosage: 20 MG, QHS AS NEEDED
     Route: 048
     Dates: start: 19941210
  9. PROGRAF [Suspect]
     Active Substance: TACROLIMUS\TACROLIMUS ANHYDROUS
     Indication: LIVER TRANSPLANT REJECTION
     Dosage: 0.5 MG, ONCE DAILY
     Route: 048
     Dates: start: 19941210
  10. MOMETASONE FUROATE. [Concomitant]
     Active Substance: MOMETASONE FUROATE
     Indication: DRY SKIN
     Dosage: UNK UNK, AS NEEDED
     Route: 061
  11. AMLODIPINE [Concomitant]
     Active Substance: AMLODIPINE BESYLATE
     Indication: HYPERTENSION
     Route: 048
  12. LISINOPRIL. [Concomitant]
     Active Substance: LISINOPRIL
     Indication: HYPERTENSION
     Route: 048

REACTIONS (14)
  - Liver disorder [Recovered/Resolved]
  - Blood magnesium decreased [Unknown]
  - Diabetes mellitus [Unknown]
  - Congenital cystic kidney disease [Unknown]
  - Overdose [Recovered/Resolved]
  - Gout [Not Recovered/Not Resolved]
  - Ammonia increased [Recovered/Resolved]
  - Intervertebral disc injury [Not Recovered/Not Resolved]
  - Syncope [Unknown]
  - Disorientation [Recovered/Resolved]
  - Coronary arterial stent insertion [Recovered/Resolved]
  - Renal failure [Not Recovered/Not Resolved]
  - Skin cancer [Recovered/Resolved]
  - Hypertension [Unknown]

NARRATIVE: CASE EVENT DATE: 199412
